FAERS Safety Report 7557883-6 (Version None)
Quarter: 2011Q2

REPORT INFORMATION
  Report Type: 
  Country: None (occurrence: None)
  Receive Date: 20110620
  Receipt Date: 20110602
  Transmission Date: 20111010
  Serious: Yes (Hospitalization)
  Sender: FDA-Public Use
  Company Number: A0835536A

PATIENT
  Age: 57 Year
  Sex: Male
  Weight: 100.9 kg

DRUGS (6)
  1. GLIPIZIDE [Concomitant]
  2. ZOCOR [Concomitant]
  3. OMEPRAZOLE [Concomitant]
  4. AVANDIA [Suspect]
     Dosage: 4MG TWICE PER DAY
     Route: 048
     Dates: start: 20000101, end: 20080701
  5. METFORMIN HCL [Concomitant]
  6. AMITRIPTYLINE HCL [Concomitant]

REACTIONS (6)
  - CARDIAC DISORDER [None]
  - BLOOD CHOLESTEROL INCREASED [None]
  - CARDIAC FAILURE CONGESTIVE [None]
  - CORONARY ARTERY DISEASE [None]
  - EJECTION FRACTION DECREASED [None]
  - HYPERTENSION [None]
